FAERS Safety Report 4656015-1 (Version None)
Quarter: 2005Q2

REPORT INFORMATION
  Report Type: 
  Country: None (occurrence: None)
  Receive Date: 20050506
  Receipt Date: 20050506
  Transmission Date: 20051028
  Serious: Yes (Other)
  Sender: FDA-Public Use
  Company Number: None

PATIENT
  Age: 64 Year
  Sex: Female

DRUGS (1)
  1. ZYCAM [Suspect]
     Indication: UPPER RESPIRATORY TRACT INFECTION
     Dosage: INTRANASAL TID
     Route: 050

REACTIONS (1)
  - ANOSMIA [None]
